FAERS Safety Report 20924555 (Version 1)
Quarter: 2022Q2

REPORT INFORMATION
  Report Type: Spontaneous
  Country: DE (occurrence: DE)
  Receive Date: 20220607
  Receipt Date: 20220607
  Transmission Date: 20220720
  Serious: Yes (Other)
  Sender: FDA-Public Use
  Company Number: None

PATIENT
  Age: 56 Year
  Sex: Female
  Weight: 69 kg

DRUGS (1)
  1. CIPROFLOXACIN [Suspect]
     Active Substance: CIPROFLOXACIN
     Indication: Bacterial infection
     Dosage: 250 MILLIGRAM, BID (10 DAYS / 250 MG (TWICE DAILY))
     Route: 048
     Dates: start: 20090517, end: 20090527

REACTIONS (8)
  - Myelosuppression [Recovered/Resolved with Sequelae]
  - Muscle contractions involuntary [Recovered/Resolved with Sequelae]
  - Tibia fracture [Unknown]
  - Muscle spasms [Unknown]
  - Fatigue [Recovered/Resolved with Sequelae]
  - Muscular weakness [Recovered/Resolved with Sequelae]
  - Paraesthesia [Recovered/Resolved with Sequelae]
  - Tremor [Recovered/Resolved with Sequelae]

NARRATIVE: CASE EVENT DATE: 20100101
